FAERS Safety Report 16625061 (Version 4)
Quarter: 2019Q4

REPORT INFORMATION
  Report Type: Report from Study
  Country: FI (occurrence: FI)
  Receive Date: 20190724
  Receipt Date: 20191002
  Transmission Date: 20200122
  Serious: Yes (Hospitalization, Disabling)
  Sender: FDA-Public Use
  Company Number: FI-ROCHE-2355771

PATIENT
  Age: 57 Year
  Sex: Female
  Weight: 89.1 kg

DRUGS (18)
  1. OCRELIZUMAB. [Suspect]
     Active Substance: OCRELIZUMAB
     Indication: PRIMARY PROGRESSIVE MULTIPLE SCLEROSIS
     Dosage: ONCE EVERY SIX MONTHS (DUAL INFUSIONS SEPARATED BY 14 DAYS AT A SCHEDULED INTERVAL OF EVERY 24 WEEKS
     Route: 042
     Dates: start: 20151201
  2. SIRDALUD [Concomitant]
     Active Substance: TIZANIDINE
     Route: 065
     Dates: start: 201806
  3. PARACETAMOL [Concomitant]
     Active Substance: ACETAMINOPHEN
     Route: 065
     Dates: start: 20170505
  4. PARACETAMOL [Concomitant]
     Active Substance: ACETAMINOPHEN
     Dosage: SUBSEQUENT DOSE ON: 12/FEB/2019
     Route: 065
     Dates: start: 20171010
  5. FEMOSTON [Concomitant]
     Active Substance: DYDROGESTERONE\ESTRADIOL
     Indication: MENOPAUSAL SYMPTOMS
     Route: 065
     Dates: start: 20130415
  6. IBUPROFEN. [Concomitant]
     Active Substance: IBUPROFEN
     Indication: PAIN IN EXTREMITY
     Route: 065
     Dates: start: 2008
  7. BLINDED OCRELIZUMAB [Suspect]
     Active Substance: OCRELIZUMAB
     Indication: PRIMARY PROGRESSIVE MULTIPLE SCLEROSIS
     Dosage: ONCE EVERY SIX MONTHS (DUAL INFUSIONS SEPARATED BY 14 DAYS AT A SCHEDULED INTERVAL OF EVERY 24 WEEKS
     Route: 042
     Dates: start: 20111011, end: 20151130
  8. METHYLPREDNISOLONE. [Concomitant]
     Active Substance: METHYLPREDNISOLONE
     Dosage: SUBSEQUENT DOSE ON: 29/DEC/2014, 12/JAN/2015, 15/JUN/2015, 29/JUN/2015,  01/DEC/2015, 15/DEC/2015, 1
     Route: 065
     Dates: start: 20140805
  9. METHYLPREDNISOLONE. [Concomitant]
     Active Substance: METHYLPREDNISOLONE
     Dosage: SUBSEQUENT DOSE ON:  25/OCT/2011, 27/MAR/2012, 10/APR/2012, 10/SEP/2012,  24/SEP/2012,  25/FEB/2013,
     Route: 065
     Dates: start: 20111011
  10. SIRDALUD [Concomitant]
     Active Substance: TIZANIDINE
     Indication: MUSCLE SPASTICITY
     Route: 065
     Dates: start: 2008, end: 201506
  11. TRIPTYL [Concomitant]
     Active Substance: AMITRIPTYLINE HYDROCHLORIDE
     Indication: PAIN IN EXTREMITY
     Route: 065
     Dates: start: 2010
  12. PAMOL [Concomitant]
     Active Substance: ACETAMINOPHEN
     Dosage: SUBSEQUENT DOSE ON: 04/SEP/2018
     Route: 065
     Dates: start: 20180326
  13. PANADOL [Concomitant]
     Active Substance: ACETAMINOPHEN
     Dosage: SUBSEQUENT DOSE ON: 29/DEC/2014
     Route: 065
     Dates: start: 20130826
  14. IMOVANE [Concomitant]
     Active Substance: ZOPICLONE
     Indication: INSOMNIA
     Route: 065
     Dates: start: 20130115
  15. HISTEC [Concomitant]
     Active Substance: CETIRIZINE HYDROCHLORIDE
     Dosage: SUBSEQUENT DOSE ON: 25/OCT/2011, 27/MAR/2012, 10/APR/2012, 10/SEP/2012, 24/SEP/2012, 25/FEB/2013, 11
     Route: 065
     Dates: start: 20111011
  16. SIRDALUD [Concomitant]
     Active Substance: TIZANIDINE
     Route: 065
     Dates: start: 201506, end: 201806
  17. PARACETAMOL [Concomitant]
     Active Substance: ACETAMINOPHEN
     Dosage: 25/OCT/2011, 27/MAR/2012, 10/APR/2012, 10/SEP/2012, 24/SEP/2012, 25/FEB/2013, 11/MAR/2013, 12/AUG/20
     Route: 065
     Dates: start: 20111011
  18. FISH OIL [Concomitant]
     Active Substance: FISH OIL
     Route: 065
     Dates: start: 1990

REACTIONS (1)
  - Appendicitis [Recovered/Resolved]

NARRATIVE: CASE EVENT DATE: 20190629
